FAERS Safety Report 6057843-0 (Version None)
Quarter: 2009Q1

REPORT INFORMATION
  Report Type: 
  Country: None (occurrence: None)
  Receive Date: 20090129
  Receipt Date: 20090119
  Transmission Date: 20090719
  Serious: Yes (Death)
  Sender: FDA-Public Use
  Company Number: US-ELI_LILLY_AND_COMPANY-US200901003265

PATIENT
  Sex: Female

DRUGS (1)
  1. CYMBALTA [Suspect]
     Dates: start: 20060101

REACTIONS (2)
  - HEPATIC FAILURE [None]
  - JAUNDICE [None]
